FAERS Safety Report 10405418 (Version 2)
Quarter: 2014Q3

REPORT INFORMATION
  Report Type: Spontaneous
  Country: US (occurrence: US)
  Receive Date: 20140825
  Receipt Date: 20140901
  Transmission Date: 20150326
  Serious: Yes (Hospitalization)
  Sender: FDA-Public Use
  Company Number: US-UNITED THERAPEUTICS-UNT-2014-005828

PATIENT
  Age: 16 Year
  Sex: Male
  Weight: 48.73 kg

DRUGS (3)
  1. TRACLEER [Concomitant]
     Active Substance: BOSENTAN\BOSENTAN MONOHYDRATE
     Indication: PRODUCT USED FOR UNKNOWN INDICATION
  2. REMODULIN [Suspect]
     Active Substance: TREPROSTINIL
     Indication: PULMONARY ARTERIAL HYPERTENSION
     Dosage: 0.13 ?G/KG, CONTINUING
     Route: 041
     Dates: start: 20070821
  3. REMODULIN [Suspect]
     Active Substance: TREPROSTINIL
     Dosage: 0.13 ?G/KG, CONTINUING
     Route: 058
     Dates: start: 20070822

REACTIONS (3)
  - Drug dose omission [Unknown]
  - Device dislocation [Recovered/Resolved]
  - Infection [Unknown]

NARRATIVE: CASE EVENT DATE: 2014
